FAERS Safety Report 6604501-7 (Version None)
Quarter: 2010Q1

REPORT INFORMATION
  Report Type: 
  Country: None (occurrence: None)
  Receive Date: 20100226
  Receipt Date: 20091102
  Transmission Date: 20100710
  Serious: No
  Sender: FDA-Public Use
  Company Number: A0814392A

PATIENT
  Sex: Female

DRUGS (3)
  1. LAMICTAL CD [Suspect]
     Indication: MIGRAINE
     Dosage: 250MG PER DAY
     Route: 048
  2. ALCOHOL [Suspect]
     Route: 048
  3. LEXAPRO [Concomitant]

REACTIONS (2)
  - AMNESIA [None]
  - DEPRESSION [None]
